FAERS Safety Report 6008211-9 (Version None)
Quarter: 2008Q4

REPORT INFORMATION
  Report Type: 
  Country: None (occurrence: None)
  Receive Date: 20081217
  Receipt Date: 20080805
  Transmission Date: 20090506
  Serious: No
  Sender: FDA-Public Use
  Company Number: US-ASTRAZENECA-2008UW15406

PATIENT
  Age: 51 Year
  Sex: Male
  Weight: 79.4 kg

DRUGS (5)
  1. CRESTOR [Suspect]
     Indication: BLOOD CHOLESTEROL INCREASED
     Route: 048
     Dates: start: 20070201, end: 20080701
  2. TOPROL-XL [Suspect]
     Route: 048
     Dates: start: 20060101, end: 20070501
  3. PLAVIX [Concomitant]
  4. ASPIRIN [Concomitant]
     Dosage: LOW DOSE
  5. NIASPAN [Concomitant]

REACTIONS (6)
  - ARRHYTHMIA [None]
  - ASTHMA [None]
  - CHEST PAIN [None]
  - DYSPNOEA [None]
  - MUSCLE SPASMS [None]
  - PAIN [None]
